FAERS Safety Report 16220140 (Version 1)
Quarter: 2019Q2

REPORT INFORMATION
  Report Type: Spontaneous
  Country: CA (occurrence: CA)
  Receive Date: 20190420
  Receipt Date: 20190420
  Transmission Date: 20190711
  Serious: Yes (Hospitalization, Disabling, Other)
  Sender: FDA-Public Use
  Company Number: CA-009507513-1904CAN006045

PATIENT
  Sex: Female

DRUGS (4)
  1. FOSAMAX [Suspect]
     Active Substance: ALENDRONATE SODIUM
     Dosage: 70 MILLIGRAM, QW
     Route: 048
     Dates: start: 20090418, end: 20141221
  2. ALENDRONATE SODIUM. [Suspect]
     Active Substance: ALENDRONATE SODIUM
     Indication: OSTEOPOROSIS
     Dosage: 70 MILLIGRAM, QW
     Route: 048
     Dates: start: 20070218, end: 20090417
  3. FOSAMAX [Suspect]
     Active Substance: ALENDRONATE SODIUM
     Dosage: 70 MILLIGRAM, QW
     Route: 048
     Dates: start: 20050309, end: 20070217
  4. FOSAMAX [Suspect]
     Active Substance: ALENDRONATE SODIUM
     Indication: OSTEOPOROSIS
     Dosage: 70 MILLIGRAM, QD
     Route: 048
     Dates: start: 20000615, end: 20050309

REACTIONS (25)
  - Arthropathy [Unknown]
  - Scar [Not Recovered/Not Resolved]
  - Pelvic fracture [Not Recovered/Not Resolved]
  - Arthralgia [Not Recovered/Not Resolved]
  - Diarrhoea [Unknown]
  - Osteoporosis [Not Recovered/Not Resolved]
  - Gastrointestinal polyp [Unknown]
  - Atypical femur fracture [Recovered/Resolved with Sequelae]
  - Nephrolithiasis [Unknown]
  - Fall [Unknown]
  - Initial insomnia [Unknown]
  - Vocal cord polyp [Unknown]
  - Surgery [Unknown]
  - Tuberculosis [Unknown]
  - Snoring [Unknown]
  - Eczema [Unknown]
  - Product use issue [Unknown]
  - Breast haemorrhage [Unknown]
  - Fall [Unknown]
  - Traumatic haematoma [Unknown]
  - Dizziness [Unknown]
  - Hypoaesthesia [Unknown]
  - Breast cancer [Unknown]
  - Ecchymosis [Unknown]
  - Haemorrhoids [Unknown]

NARRATIVE: CASE EVENT DATE: 2009
